FAERS Safety Report 7940009-4 (Version None)
Quarter: 2011Q4

REPORT INFORMATION
  Report Type: 
  Country: None (occurrence: None)
  Receive Date: 20111125
  Receipt Date: 20111122
  Transmission Date: 20120403
  Serious: Yes (Other)
  Sender: FDA-Public Use
  Company Number: US-PFIZER INC-2011286118

PATIENT
  Sex: Female
  Weight: 72.6 kg

DRUGS (3)
  1. DIOVAN [Concomitant]
     Dosage: UNK
  2. EFFEXOR XR [Suspect]
     Indication: ANXIETY
     Dosage: 150 MG, 1X/DAY
     Route: 048
  3. EFFEXOR XR [Suspect]
     Indication: DEPRESSION
     Dosage: 100 MG, 1X/DAY
     Route: 048
     Dates: start: 19970101

REACTIONS (4)
  - DRY SKIN [None]
  - DRY EYE [None]
  - DRY MOUTH [None]
  - RHEUMATOID ARTHRITIS [None]
